FAERS Safety Report 9656133 (Version 1)
Quarter: 2013Q4

REPORT INFORMATION
  Report Type: Report from Study
  Country: US (occurrence: US)
  Receive Date: 20131030
  Receipt Date: 20131030
  Transmission Date: 20140711
  Serious: Yes (Hospitalization, Other)
  Sender: FDA-Public Use
  Company Number: PHHO2013US013945

PATIENT
  Age: 50 Year
  Sex: Male
  Weight: 107.7 kg

DRUGS (18)
  1. BLINDED NO TREATMENT RECEIVED [Suspect]
     Indication: POLYCYSTIC LIVER DISEASE
     Dosage: DOUBLE BLIND
     Dates: start: 20130730, end: 20130730
  2. BLINDED SOM230 [Suspect]
     Indication: POLYCYSTIC LIVER DISEASE
     Dosage: DOUBLE BLIND
     Dates: start: 20130730, end: 20130730
  3. BLINDED NO TREATMENT RECEIVED [Suspect]
     Dosage: DOUBLE BLIND
     Dates: start: 20130827, end: 20130827
  4. BLINDED SOM230 [Suspect]
     Dosage: DOUBLE BLIND
     Dates: start: 20130827, end: 20130827
  5. BLINDED NO TREATMENT RECEIVED [Suspect]
     Dosage: DOUBLE BLIND
     Dates: start: 20131001, end: 20131001
  6. BLINDED SOM230 [Suspect]
     Dosage: DOUBLE BLIND
     Dates: start: 20131001, end: 20131001
  7. ASPIRIN [Concomitant]
     Dosage: UNK
  8. FLOMAX ^BOEHRINGER INGELHEIM^ [Concomitant]
     Dosage: UNK
  9. LABETALOL [Concomitant]
     Dosage: UNK
  10. LISINOPRIL [Concomitant]
     Dosage: UNK
  11. MYFORTIC [Concomitant]
     Dosage: UNK
  12. OMEPRAZOLE [Concomitant]
     Dosage: UNK
  13. PREDNISONE [Concomitant]
     Dosage: UNK
  14. ADDITIVA MULTIVITAMIN ORANGE [Concomitant]
     Dosage: UNK
  15. TACROLIMUS [Concomitant]
     Dosage: UNK
  16. XANAX [Concomitant]
     Dosage: UNK
  17. VIAGRA [Concomitant]
     Dosage: UNK
  18. ZOLPIDEM [Concomitant]
     Dosage: UNK

REACTIONS (1)
  - Hepatic enzyme increased [Not Recovered/Not Resolved]
